FAERS Safety Report 9330691 (Version 1)
Quarter: 2013Q2

REPORT INFORMATION
  Report Type: Spontaneous
  Country: DK (occurrence: DK)
  Receive Date: 20130605
  Receipt Date: 20130605
  Transmission Date: 20140414
  Serious: Yes (Life-Threatening, Hospitalization)
  Sender: FDA-Public Use
  Company Number: DK-ELI_LILLY_AND_COMPANY-DK201305008856

PATIENT
  Age: 35 Year
  Sex: Female

DRUGS (2)
  1. ZYPREXA VELOTAB [Suspect]
     Indication: SCHIZOPHRENIA
     Dosage: 20 MG, QD
     Route: 060
     Dates: start: 20120718
  2. TRUXAL [Concomitant]
     Indication: PSYCHOTIC DISORDER
     Dosage: 1 DF, UNKNOWN
     Dates: start: 20120127

REACTIONS (1)
  - Granulocytopenia [Recovered/Resolved]
